FAERS Safety Report 23405851 (Version 2)
Quarter: 2024Q1

REPORT INFORMATION
  Report Type: Report from Study
  Country: CA (occurrence: CA)
  Receive Date: 20240116
  Receipt Date: 20240131
  Transmission Date: 20240410
  Serious: Yes (Other)
  Sender: FDA-Public Use
  Company Number: CA-SAMSUNG BIOEPIS-SB-2024-01344

PATIENT
  Age: 29 Year
  Sex: Female

DRUGS (1)
  1. RENFLEXIS [Suspect]
     Active Substance: INFLIXIMAB-ABDA
     Indication: Hidradenitis
     Dosage: VIAL
     Route: 065
     Dates: start: 20231127

REACTIONS (3)
  - Influenza like illness [Recovering/Resolving]
  - Immunodeficiency [Unknown]
  - Product use in unapproved indication [Unknown]
